FAERS Safety Report 15645101 (Version 2)
Quarter: 2018Q4

REPORT INFORMATION
  Report Type: Spontaneous
  Country: US (occurrence: US)
  Receive Date: 20181121
  Receipt Date: 20181122
  Transmission Date: 20190205
  Serious: Yes (Hospitalization, Other)
  Sender: FDA-Public Use
  Company Number: US-PFIZER INC-2018472313

PATIENT
  Age: 59 Year
  Sex: Male
  Weight: 112.2 kg

DRUGS (4)
  1. ALPRAZOLAM. [Suspect]
     Active Substance: ALPRAZOLAM
     Indication: ANXIETY
     Dosage: UNK
  2. XANAX [Suspect]
     Active Substance: ALPRAZOLAM
     Indication: ANXIETY
     Dosage: 2 MG, 3X/DAY
     Route: 048
  3. INVEGA [PALIPERIDONE] [Concomitant]
     Dosage: 6 MG, 1X/DAY
     Route: 048
  4. INVEGA [PALIPERIDONE] [Concomitant]
     Indication: SCHIZOPHRENIA
     Dosage: 3 MG, UNK
     Route: 048

REACTIONS (3)
  - Chest pain [Unknown]
  - Drug effect incomplete [Not Recovered/Not Resolved]
  - Arterial occlusive disease [Unknown]
